FAERS Safety Report 6045536-5 (Version None)
Quarter: 2009Q1

REPORT INFORMATION
  Report Type: 
  Country: None (occurrence: None)
  Receive Date: 20090121
  Receipt Date: 20090116
  Transmission Date: 20090719
  Serious: Yes (Other)
  Sender: FDA-Public Use
  Company Number: B0554344A

PATIENT
  Age: 44 Year
  Sex: Female

DRUGS (2)
  1. CEFUROXIME [Suspect]
     Indication: TOOTH INFECTION
     Dosage: 250MG TWICE PER DAY
     Route: 048
     Dates: start: 20090106, end: 20090107
  2. VALPROATE SODIUM [Concomitant]
     Dosage: 300MG TWICE PER DAY

REACTIONS (12)
  - ANAPHYLACTIC REACTION [None]
  - BLOOD PRESSURE DECREASED [None]
  - DIARRHOEA [None]
  - FATIGUE [None]
  - HEART RATE DECREASED [None]
  - HYPERHIDROSIS [None]
  - LOSS OF CONSCIOUSNESS [None]
  - MALAISE [None]
  - PRURITUS [None]
  - SWELLING FACE [None]
  - THROAT TIGHTNESS [None]
  - VOMITING [None]
